FAERS Safety Report 5950591-4 (Version None)
Quarter: 2008Q4

REPORT INFORMATION
  Report Type: 
  Country: None (occurrence: None)
  Receive Date: 20081022
  Receipt Date: 20080723
  Transmission Date: 20090506
  Serious: No
  Sender: FDA-Public Use
  Company Number: ALL1-2008-02078

PATIENT
  Age: 14 Year
  Sex: Female
  Weight: 39 kg

DRUGS (3)
  1. VYVANSE [Suspect]
     Indication: ATTENTION DEFICIT/HYPERACTIVITY DISORDER
     Dosage: 30 MG,1X/DAY:QD,ORAL; 50 MG,1X/DAY:QD,ORAL; 70 MG,1X/DAY:QD,ORAL
     Route: 048
     Dates: start: 20080628, end: 20080702
  2. VYVANSE [Suspect]
     Indication: ATTENTION DEFICIT/HYPERACTIVITY DISORDER
     Dosage: 30 MG,1X/DAY:QD,ORAL; 50 MG,1X/DAY:QD,ORAL; 70 MG,1X/DAY:QD,ORAL
     Route: 048
     Dates: start: 20080623, end: 20080727
  3. VYVANSE [Suspect]
     Indication: ATTENTION DEFICIT/HYPERACTIVITY DISORDER
     Dosage: 30 MG,1X/DAY:QD,ORAL; 50 MG,1X/DAY:QD,ORAL; 70 MG,1X/DAY:QD,ORAL
     Route: 048
     Dates: start: 20080703

REACTIONS (5)
  - ANOREXIA [None]
  - FATIGUE [None]
  - OFF LABEL USE [None]
  - SLEEP DISORDER [None]
  - WEIGHT DECREASED [None]
